FAERS Safety Report 13924046 (Version 1)
Quarter: 2017Q3

REPORT INFORMATION
  Report Type: Spontaneous
  Country: US (occurrence: None)
  Receive Date: 20170830
  Receipt Date: 20170830
  Transmission Date: 20171127
  Serious: No
  Sender: FDA-Public Use
  Company Number: None

PATIENT
  Sex: Female
  Weight: 78.02 kg

DRUGS (2)
  1. FORTEO [Suspect]
     Active Substance: TERIPARATIDE
     Indication: OSTEOPOROSIS
     Route: 058
  2. STARLIX [Suspect]
     Active Substance: NATEGLINIDE

REACTIONS (4)
  - Blood potassium increased [None]
  - Renal failure [None]
  - Decreased appetite [None]
  - Diarrhoea [None]
